FAERS Safety Report 4869822-7 (Version None)
Quarter: 2005Q4

REPORT INFORMATION
  Report Type: 
  Country: None (occurrence: None)
  Receive Date: 20051223
  Receipt Date: 20051214
  Transmission Date: 20060501
  Serious: Yes (Hospitalization)
  Sender: FDA-Public Use
  Company Number: 220243

PATIENT
  Age: 52 Year
  Sex: Male

DRUGS (4)
  1. AVASTIN [Suspect]
     Indication: NON-SMALL CELL LUNG CANCER
     Dosage: 1495 MG, INTRAVENOUS
     Route: 042
     Dates: start: 20051107
  2. DOCETAXEL (DOCETAXEL) [Suspect]
     Indication: NON-SMALL CELL LUNG CANCER
     Dosage: 150 MG, INTRAVENOUS
     Route: 042
     Dates: start: 20051121
  3. CISPLATIN [Suspect]
     Indication: NON-SMALL CELL LUNG CANCER
     Dosage: 168 MG, INTRAVENOUS
     Route: 042
     Dates: start: 20051121
  4. ATORVASTATIN (ATORVASTATIN CALCIUM) [Concomitant]

REACTIONS (1)
  - FEBRILE NEUTROPENIA [None]
